FAERS Safety Report 9163825 (Version 2)
Quarter: 2013Q1

REPORT INFORMATION
  Report Type: Spontaneous
  Country: US (occurrence: US)
  Receive Date: 20130314
  Receipt Date: 20130321
  Transmission Date: 20140127
  Serious: Yes (Other)
  Sender: FDA-Public Use
  Company Number: US-BAXTER-2013BAX007431

PATIENT
  Age: 53 Year
  Sex: Female

DRUGS (1)
  1. DIANEAL LOW CALCIUM [Suspect]
     Indication: PERITONEAL DIALYSIS
     Route: 033

REACTIONS (6)
  - Convulsion [Recovering/Resolving]
  - Ligament sprain [Recovering/Resolving]
  - Poor quality sleep [Unknown]
  - Pain in extremity [Unknown]
  - Procedural pain [Unknown]
  - Muscle spasms [Unknown]
